FAERS Safety Report 23526468 (Version 1)
Quarter: 2024Q1

REPORT INFORMATION
  Report Type: Spontaneous
  Country: US (occurrence: None)
  Receive Date: 20240214
  Receipt Date: 20240214
  Transmission Date: 20240410
  Serious: Yes (Other)
  Sender: FDA-Public Use
  Company Number: None

PATIENT
  Age: 80 Year
  Sex: Female
  Weight: 73.8 kg

DRUGS (3)
  1. KEYTRUDA [Suspect]
     Active Substance: PEMBROLIZUMAB
     Indication: Angiosarcoma
     Dates: start: 20231212
  2. TORADOL [Suspect]
     Active Substance: KETOROLAC TROMETHAMINE
  3. TRESIBA [Concomitant]
     Active Substance: INSULIN DEGLUDEC

REACTIONS (5)
  - Arthralgia [None]
  - Musculoskeletal discomfort [None]
  - Infusion related reaction [None]
  - Erythema [None]
  - Swelling face [None]

NARRATIVE: CASE EVENT DATE: 20231212
